FAERS Safety Report 13781689 (Version 1)
Quarter: 2017Q3

REPORT INFORMATION
  Report Type: Spontaneous
  Country: CA (occurrence: CA)
  Receive Date: 20170724
  Receipt Date: 20170724
  Transmission Date: 20171127
  Serious: Yes (Other)
  Sender: FDA-Public Use
  Company Number: CA-PFIZER INC-3095831

PATIENT
  Sex: Male

DRUGS (1)
  1. DOCETAXEL HOSPIRA [Suspect]
     Active Substance: DOCETAXEL
     Indication: PRODUCT USED FOR UNKNOWN INDICATION
     Dosage: UNK, CYCLIC

REACTIONS (3)
  - Chest pain [Unknown]
  - Flushing [Unknown]
  - Photopsia [Unknown]

NARRATIVE: CASE EVENT DATE: 20151125
